FAERS Safety Report 13407983 (Version 1)
Quarter: 2017Q2

REPORT INFORMATION
  Report Type: Spontaneous
  Country: US (occurrence: US)
  Receive Date: 20170406
  Receipt Date: 20170406
  Transmission Date: 20170830
  Serious: No
  Sender: FDA-Public Use
  Company Number: US-AMGEN-USASP2017045034

PATIENT
  Age: 60 Year
  Sex: Female

DRUGS (4)
  1. ENBREL [Suspect]
     Active Substance: ETANERCEPT
     Indication: SKIN INFECTION
  2. ENBREL [Suspect]
     Active Substance: ETANERCEPT
     Indication: OSTEOMYELITIS
     Dosage: 50 MG, QWK
     Route: 065
     Dates: start: 2015
  3. ENBREL [Suspect]
     Active Substance: ETANERCEPT
     Indication: TENOSYNOVITIS
  4. ENBREL [Suspect]
     Active Substance: ETANERCEPT
     Indication: SYNOVITIS

REACTIONS (5)
  - Back pain [Not Recovered/Not Resolved]
  - Injection site haemorrhage [Unknown]
  - Pain in extremity [Recovering/Resolving]
  - Off label use [Unknown]
  - Injection site pain [Unknown]

NARRATIVE: CASE EVENT DATE: 2015
